FAERS Safety Report 16896490 (Version 1)
Quarter: 2019Q4

REPORT INFORMATION
  Report Type: Spontaneous
  Country: US (occurrence: US)
  Receive Date: 20191008
  Receipt Date: 20191008
  Transmission Date: 20200122
  Serious: No
  Sender: FDA-Public Use
  Company Number: US-AMAG PHARMACEUTICALS, INC.-AMAG201905089

PATIENT
  Sex: Female

DRUGS (4)
  1. COMPOUNDED VAGINAL CREAM [Concomitant]
     Indication: VULVOVAGINAL DRYNESS
     Route: 061
  2. INTRAROSA [Suspect]
     Active Substance: PRASTERONE
     Indication: VULVOVAGINAL DRYNESS
     Route: 067
  3. INTRAROSA [Suspect]
     Active Substance: PRASTERONE
     Indication: VULVOVAGINAL DISCOMFORT
  4. COMPOUNDED VAGINAL CREAM [Concomitant]
     Indication: VULVOVAGINAL DISCOMFORT

REACTIONS (2)
  - Constipation [Not Recovered/Not Resolved]
  - Off label use [Unknown]
